FAERS Safety Report 12145792 (Version 3)
Quarter: 2016Q2

REPORT INFORMATION
  Report Type: Spontaneous
  Country: JP (occurrence: JP)
  Receive Date: 20160304
  Receipt Date: 20160531
  Transmission Date: 20160815
  Serious: Yes (Hospitalization, Disabling)
  Sender: FDA-Public Use
  Company Number: JP-JNJFOC-20160227398

PATIENT
  Sex: Female
  Weight: 55 kg

DRUGS (9)
  1. IMPROMEN [Suspect]
     Active Substance: BROMPERIDOL
     Indication: SCHIZOPHRENIA
     Route: 048
     Dates: start: 200111, end: 200303
  2. SEROQUEL [Suspect]
     Active Substance: QUETIAPINE FUMARATE
     Indication: SCHIZOPHRENIA
     Dosage: 100 TO 300MG,1 TO 3TIMES PER DAY
     Route: 048
     Dates: start: 20070206, end: 20081009
  3. SEROQUEL [Suspect]
     Active Substance: QUETIAPINE FUMARATE
     Indication: SCHIZOPHRENIA
     Route: 048
     Dates: start: 20110212, end: 20110408
  4. INVEGA [Suspect]
     Active Substance: PALIPERIDONE
     Indication: SCHIZOPHRENIA
     Route: 048
     Dates: start: 20110415, end: 20130502
  5. LULLAN [Suspect]
     Active Substance: PEROSPIRONE HYDROCHLORIDE
     Indication: SCHIZOPHRENIA
     Dosage: 1 TO 2 TIMES A DAY
     Route: 048
     Dates: start: 20120613
  6. ABILIFY [Suspect]
     Active Substance: ARIPIPRAZOLE
     Indication: SCHIZOPHRENIA
     Route: 048
     Dates: start: 20060808, end: 20061204
  7. RISPERDAL [Suspect]
     Active Substance: RISPERIDONE
     Indication: SCHIZOPHRENIA
     Route: 048
     Dates: start: 20081023, end: 20110211
  8. LULLAN [Suspect]
     Active Substance: PEROSPIRONE HYDROCHLORIDE
     Indication: SCHIZOPHRENIA
     Dosage: 8 TO 16 MG, 1 TO 3 TIMES A DAY
     Route: 048
     Dates: start: 20061205, end: 20070430
  9. LONASEN [Suspect]
     Active Substance: BLONANSERIN
     Indication: SCHIZOPHRENIA
     Route: 048
     Dates: start: 20081010, end: 20081113

REACTIONS (2)
  - Motor dysfunction [Not Recovered/Not Resolved]
  - Dystonia [Not Recovered/Not Resolved]
